FAERS Safety Report 5770688-1 (Version None)
Quarter: 2008Q2

REPORT INFORMATION
  Report Type: 
  Country: None (occurrence: None)
  Receive Date: 20080613
  Receipt Date: 20080509
  Transmission Date: 20081010
  Serious: No
  Sender: FDA-Public Use
  Company Number: US-ABBOTT-08P-163-0451328-00

PATIENT
  Sex: Male
  Weight: 69.916 kg

DRUGS (5)
  1. HUMIRA [Suspect]
     Indication: PSORIATIC ARTHROPATHY
     Route: 050
     Dates: start: 20040101, end: 20050101
  2. HUMIRA [Suspect]
     Dates: start: 20080101, end: 20080101
  3. HUMIRA [Suspect]
     Dates: start: 20080201
  4. LISINOPRIL [Concomitant]
     Indication: HYPERTENSION
     Route: 048
     Dates: start: 20071001
  5. LISINOPRIL [Concomitant]
     Indication: BLOOD PRESSURE

REACTIONS (2)
  - ARTHRALGIA [None]
  - JOINT SWELLING [None]
